FAERS Safety Report 6326229-3 (Version None)
Quarter: 2009Q3

REPORT INFORMATION
  Report Type: 
  Country: None (occurrence: None)
  Receive Date: 20090820
  Receipt Date: 20090807
  Transmission Date: 20100115
  Serious: Yes (Hospitalization, Other)
  Sender: FDA-Public Use
  Company Number: JPI-P-008145

PATIENT
  Age: 32 Year
  Sex: Female

DRUGS (4)
  1. XYREM [Suspect]
     Indication: FIBROMYALGIA
     Dosage: ORAL
     Route: 048
     Dates: start: 20090320, end: 20090801
  2. XYREM [Suspect]
     Indication: NARCOLEPSY
     Dosage: ORAL
     Route: 048
     Dates: start: 20090320, end: 20090801
  3. XYREM [Suspect]
     Indication: NIGHTMARE
     Dosage: ORAL
     Route: 048
     Dates: start: 20090320, end: 20090801
  4. OPIATE [Suspect]
     Indication: OVERDOSE
     Dates: end: 20090801

REACTIONS (4)
  - OVERDOSE [None]
  - SCHIZOPHRENIA [None]
  - SUICIDE ATTEMPT [None]
  - WEIGHT DECREASED [None]
